FAERS Safety Report 9930378 (Version 1)
Quarter: 2014Q1

REPORT INFORMATION
  Report Type: Spontaneous
  Country: US (occurrence: US)
  Receive Date: 20140227
  Receipt Date: 20140227
  Transmission Date: 20141002
  Serious: No
  Sender: FDA-Public Use
  Company Number: US-AMGEN-USASP2013083808

PATIENT
  Age: 55 Year
  Sex: Male
  Weight: 86.16 kg

DRUGS (6)
  1. ENBREL [Suspect]
     Indication: PRODUCT USED FOR UNKNOWN INDICATION
     Dosage: 50 MG, QWK
     Route: 058
  2. DIPHENHYDRAMIN [Concomitant]
     Dosage: 25 MG, UNK
  3. VITAMIN E                          /00110501/ [Concomitant]
     Dosage: 1000 UNIT, UNK
  4. VITAMIN B [Concomitant]
     Dosage: UNK
  5. VITAMIN D                          /00107901/ [Concomitant]
     Dosage: 1000 UNIT, UNK
  6. FOLIC ACID [Concomitant]
     Dosage: UNK

REACTIONS (1)
  - Pain [Unknown]
